FAERS Safety Report 8490055-X (Version None)
Quarter: 2012Q3

REPORT INFORMATION
  Report Type: 
  Country: None (occurrence: None)
  Receive Date: 20120705
  Receipt Date: 20120625
  Transmission Date: 20120928
  Serious: Yes (Death, Life-Threatening, Hospitalization, Other)
  Sender: FDA-Public Use
  Company Number: JP-JNJFOC-20070205479

PATIENT
  Sex: Male
  Weight: 65 kg

DRUGS (23)
  1. REMICADE [Suspect]
     Route: 042
     Dates: start: 20060320
  2. ENSURE [Suspect]
     Indication: NUTRITIONAL SUPPORT
     Route: 048
  3. TSUMURA DAI KENCHU TO EXTRACT GRANULES [Concomitant]
     Route: 048
  4. REMICADE [Suspect]
     Route: 042
     Dates: start: 20070112
  5. POSTERISAN [Suspect]
     Indication: ANAL INFLAMMATION
  6. REMICADE [Suspect]
     Route: 042
     Dates: start: 20061115
  7. MIYA BM [Suspect]
     Indication: FLATULENCE
     Route: 048
  8. LENDORMIN [Suspect]
     Indication: INSOMNIA
     Route: 048
  9. CLARITIN [Concomitant]
     Indication: SEASONAL ALLERGY
     Route: 048
  10. REMICADE [Suspect]
     Indication: CROHN'S DISEASE
     Route: 042
     Dates: start: 20060712
  11. REMICADE [Suspect]
     Route: 042
     Dates: start: 20051116
  12. GLUCOSE [Concomitant]
     Route: 042
  13. CEFAZOLIN SODIUM [Concomitant]
     Route: 048
  14. PENTASA [Suspect]
     Indication: CROHN'S DISEASE
     Route: 048
  15. REMICADE [Suspect]
     Route: 042
     Dates: start: 20050225
  16. REMICADE [Suspect]
     Route: 042
     Dates: start: 20040917
  17. IRON SUCROSE [Concomitant]
     Route: 042
  18. REMICADE [Suspect]
     Route: 042
     Dates: start: 20060517
  19. REMICADE [Suspect]
     Route: 042
     Dates: start: 20050311
  20. REMICADE [Suspect]
     Route: 042
     Dates: start: 20041028
  21. REMICADE [Suspect]
     Route: 042
     Dates: start: 20041001
  22. REMICADE [Suspect]
     Route: 042
     Dates: start: 20060906
  23. ROXATIDINE ACETATE HCL [Concomitant]
     Route: 048

REACTIONS (1)
  - ADENOCARCINOMA [None]
